FAERS Safety Report 19442803 (Version 1)
Quarter: 2021Q2

REPORT INFORMATION
  Report Type: Spontaneous
  Country: US (occurrence: US)
  Receive Date: 20210621
  Receipt Date: 20210621
  Transmission Date: 20210717
  Serious: No
  Sender: FDA-Public Use
  Company Number: US-US-PROVELL PHARMACEUTICALS LLC-9242887

PATIENT
  Sex: Female

DRUGS (1)
  1. EUTHYROX [Suspect]
     Active Substance: LEVOTHYROXINE SODIUM
     Indication: PRODUCT USED FOR UNKNOWN INDICATION

REACTIONS (7)
  - Chest discomfort [Unknown]
  - Nervousness [Unknown]
  - Insomnia [Unknown]
  - Overdose [Unknown]
  - Irritability [Unknown]
  - Cardiac disorder [Unknown]
  - Headache [Unknown]
